FAERS Safety Report 24678584 (Version 1)
Quarter: 2024Q4

REPORT INFORMATION
  Report Type: Spontaneous
  Country: ES (occurrence: ES)
  Receive Date: 20241129
  Receipt Date: 20241129
  Transmission Date: 20250115
  Serious: Yes (Other)
  Sender: AMGEN
  Company Number: ES-AMGEN-ESPSP2024232585

PATIENT

DRUGS (1)
  1. ADALIMUMAB [Suspect]
     Active Substance: ADALIMUMAB
     Indication: Uveitis
     Dosage: UNK
     Route: 065

REACTIONS (16)
  - Ocular hypertension [Unknown]
  - Iris adhesions [Unknown]
  - Optic neuritis [Unknown]
  - Hypotony of eye [Unknown]
  - Cataract [Unknown]
  - Glaucoma [Unknown]
  - Cystoid macular oedema [Unknown]
  - Retinoschisis [Unknown]
  - Choroidal neovascularisation [Unknown]
  - Retinal neovascularisation [Unknown]
  - Drug ineffective [Unknown]
  - Keratopathy [Unknown]
  - Epiretinal membrane [Unknown]
  - Eye disorder [Unknown]
  - Papillitis [Unknown]
  - Adverse event [Unknown]
